FAERS Safety Report 7585495-7 (Version None)
Quarter: 2011Q3

REPORT INFORMATION
  Report Type: 
  Country: None (occurrence: None)
  Receive Date: 20110701
  Receipt Date: 20110616
  Transmission Date: 20111222
  Serious: Yes (Hospitalization)
  Sender: FDA-Public Use
  Company Number: US-BAYER-2011-002606

PATIENT
  Age: 53 Year
  Sex: Female
  Weight: 76.644 kg

DRUGS (11)
  1. NEXAVAR [Suspect]
     Dosage: 400 MG, QD
     Route: 048
     Dates: start: 20101207, end: 20101207
  2. ASPIRIN [Concomitant]
     Indication: ATRIAL FIBRILLATION
     Dosage: 81 MG, QD
  3. NEXAVAR [Suspect]
     Dosage: 200 MG, ONCE
     Route: 048
     Dates: start: 20101228, end: 20101228
  4. NEXAVAR [Suspect]
     Indication: HEPATIC NEOPLASM MALIGNANT NON-RESECTABLE
     Dosage: 200 MG, BID
     Route: 048
     Dates: start: 20101113
  5. XANAX [Concomitant]
     Dosage: 0.5 MG, HS
  6. MAGNESIUM [Concomitant]
     Dosage: 400 MG, QD
  7. METOPROLOL TARTRATE [Concomitant]
     Indication: HYPERTENSION
     Dosage: 150 MG, BID
  8. DIGOXIN [Concomitant]
     Dosage: 0.25 MG, QD
  9. CALCIUM WITH VITAMIN D [Concomitant]
  10. METOPROLOL TARTRATE [Concomitant]
     Dosage: 100 MG, BID
     Route: 048
     Dates: start: 20101210
  11. STOOL SOFTENER [Concomitant]
     Indication: CONSTIPATION PROPHYLAXIS
     Dosage: 1-2 TABLETS DAILY

REACTIONS (22)
  - CHILLS [None]
  - VOMITING [None]
  - FEELING HOT [None]
  - FATIGUE [None]
  - RASH [None]
  - GASTROENTERITIS VIRAL [None]
  - NEUTROPENIA [None]
  - ORAL PAIN [None]
  - NAUSEA [None]
  - SINUSITIS [None]
  - ANAEMIA [None]
  - PARAESTHESIA ORAL [None]
  - PYREXIA [None]
  - SKIN DISCOLOURATION [None]
  - DIARRHOEA [None]
  - OEDEMA PERIPHERAL [None]
  - CYANOSIS [None]
  - DEHYDRATION [None]
  - FEBRILE NEUTROPENIA [None]
  - HYPOTENSION [None]
  - THROAT IRRITATION [None]
  - HYPOMAGNESAEMIA [None]
